FAERS Safety Report 5395000-1 (Version None)
Quarter: 2007Q3

REPORT INFORMATION
  Report Type: 
  Country: None (occurrence: None)
  Receive Date: 20070713
  Receipt Date: 20070503
  Transmission Date: 20080115
  Serious: Yes (Hospitalization)
  Sender: FDA-Public Use
  Company Number: US-JNJFOC-20061101263

PATIENT
  Age: 23 Year
  Sex: Female
  Weight: 62.5964 kg

DRUGS (5)
  1. ORTHO EVRA [Suspect]
     Indication: CONTRACEPTION
     Dosage: TRANSDERMAL
     Route: 062
     Dates: end: 20040201
  2. ORTHO EVRA [Suspect]
     Indication: CONTRACEPTION
     Dosage: TRANSDERMAL
     Route: 062
     Dates: start: 20040901
  3. NAPROXEN [Concomitant]
  4. LORTAB [Concomitant]
  5. FLEXERIL [Concomitant]

REACTIONS (3)
  - DEEP VEIN THROMBOSIS [None]
  - PHARMACEUTICAL PRODUCT COMPLAINT [None]
  - VENA CAVA THROMBOSIS [None]
